FAERS Safety Report 7301866-8 (Version None)
Quarter: 2011Q1

REPORT INFORMATION
  Report Type: 
  Country: None (occurrence: None)
  Receive Date: 20110218
  Receipt Date: 20110210
  Transmission Date: 20110831
  Serious: Yes (Other)
  Sender: FDA-Public Use
  Company Number: US-ROCHE-737538

PATIENT
  Sex: Female

DRUGS (9)
  1. AMNESTEEM [Suspect]
     Route: 065
     Dates: start: 20080101, end: 20080701
  2. ACCUTANE [Suspect]
     Indication: ACNE
     Route: 065
     Dates: start: 19850101, end: 19850301
  3. ALEVE [Concomitant]
  4. ACCUTANE [Suspect]
     Route: 065
     Dates: start: 19860101, end: 19860101
  5. ACCUTANE [Suspect]
     Route: 065
     Dates: start: 20080101, end: 20080601
  6. CLARAVIS [Suspect]
     Dosage: DISPENSED ON 29 MAR 2008
     Route: 065
  7. LOPERAMIDE [Concomitant]
  8. TYLENOL [Concomitant]
  9. ACCUTANE [Suspect]
     Route: 065
     Dates: start: 19980801, end: 19991001

REACTIONS (9)
  - BACK PAIN [None]
  - COLITIS ULCERATIVE [None]
  - ARTHRALGIA [None]
  - INFLAMMATORY BOWEL DISEASE [None]
  - HEADACHE [None]
  - INTESTINAL HAEMORRHAGE [None]
  - NECK PAIN [None]
  - GASTROINTESTINAL INJURY [None]
  - INSOMNIA [None]
